FAERS Safety Report 14499454 (Version 1)
Quarter: 2018Q1

REPORT INFORMATION
  Report Type: Spontaneous
  Country: US (occurrence: US)
  Receive Date: 20180207
  Receipt Date: 20180207
  Transmission Date: 20180509
  Serious: No
  Sender: FDA-Public Use
  Company Number: US-PERRIGO-17US000878

PATIENT
  Sex: Female
  Weight: 108.84 kg

DRUGS (8)
  1. CETIRIZINE HYDROCHLORIDE. [Suspect]
     Active Substance: CETIRIZINE HYDROCHLORIDE
     Indication: LACRIMATION INCREASED
     Dosage: 10 MG, QHS
     Route: 048
     Dates: start: 2015, end: 20160814
  2. CETIRIZINE HYDROCHLORIDE. [Suspect]
     Active Substance: CETIRIZINE HYDROCHLORIDE
     Dosage: 10 MG, QHS
     Route: 048
     Dates: start: 20161113, end: 20170112
  3. CETIRIZINE HYDROCHLORIDE. [Suspect]
     Active Substance: CETIRIZINE HYDROCHLORIDE
     Dosage: 10 MG, QHS
     Route: 048
     Dates: start: 20170113, end: 20170115
  4. CETIRIZINE HYDROCHLORIDE. [Suspect]
     Active Substance: CETIRIZINE HYDROCHLORIDE
     Dosage: 10 MG, QHS
     Route: 048
     Dates: start: 20170116
  5. CRESTOR [Concomitant]
     Active Substance: ROSUVASTATIN CALCIUM
     Indication: BLOOD CHOLESTEROL INCREASED
     Dosage: UNK
     Route: 065
     Dates: start: 2008, end: 20161022
  6. BIOTIN [Concomitant]
     Active Substance: BIOTIN
     Indication: SEBORRHOEIC DERMATITIS
     Dosage: 2000 MG, BID
     Route: 065
     Dates: start: 2014
  7. ROSUVASTATIN CALCIUM. [Concomitant]
     Active Substance: ROSUVASTATIN CALCIUM
     Indication: BLOOD CHOLESTEROL INCREASED
     Dosage: UNK
     Route: 065
     Dates: start: 20161023, end: 20161202
  8. CETIRIZINE HYDROCHLORIDE. [Suspect]
     Active Substance: CETIRIZINE HYDROCHLORIDE
     Indication: SEASONAL ALLERGY
     Dosage: 10 MG, QHS
     Route: 048
     Dates: start: 20160815, end: 20161112

REACTIONS (1)
  - Drug effect decreased [Unknown]

NARRATIVE: CASE EVENT DATE: 2016
